FAERS Safety Report 11083091 (Version 4)
Quarter: 2015Q2

REPORT INFORMATION
  Report Type: Spontaneous
  Country: US (occurrence: US)
  Receive Date: 20150501
  Receipt Date: 20150618
  Transmission Date: 20150821
  Serious: Yes (Hospitalization, Other)
  Sender: FDA-Public Use
  Company Number: US-MYLANLABS-2015M1013779

PATIENT

DRUGS (38)
  1. CYTOXAN [Suspect]
     Active Substance: CYCLOPHOSPHAMIDE
     Indication: THYMIC CANCER METASTATIC
     Dosage: , 1 IN 3 WK, 5 CYCLES
     Dates: start: 200711
  2. CISPLATINUM [Suspect]
     Active Substance: CISPLATIN
     Dosage: UNK
     Dates: start: 20140903
  3. CISPLATIN. [Suspect]
     Active Substance: CISPLATIN
     Dosage: SECOND CYCLE
     Dates: start: 20110302
  4. IBUPROFEN. [Concomitant]
     Active Substance: IBUPROFEN
     Indication: PRODUCT USED FOR UNKNOWN INDICATION
     Dosage: UNK
     Route: 048
  5. LEVOTHYROXINE [Concomitant]
     Active Substance: LEVOTHYROXINE
     Indication: PRODUCT USED FOR UNKNOWN INDICATION
     Dosage: 200 ?G, QD
     Route: 048
     Dates: start: 20141216
  6. MAGNESIUM OXIDE. [Concomitant]
     Active Substance: MAGNESIUM OXIDE
     Indication: PRODUCT USED FOR UNKNOWN INDICATION
     Dosage: 400 MG, QD
     Route: 048
     Dates: start: 20140527
  7. PREDNISONE. [Concomitant]
     Active Substance: PREDNISONE
     Dosage: 5 MG, BID
     Route: 048
     Dates: start: 20140326
  8. PREDNISONE. [Concomitant]
     Active Substance: PREDNISONE
     Dosage: 5 MG, BID
     Dates: start: 201112
  9. CISPLATINUM [Suspect]
     Active Substance: CISPLATIN
     Dosage: UNK
  10. 5 FU [Suspect]
     Active Substance: FLUOROURACIL
     Indication: THYMIC CANCER METASTATIC
     Dosage: 1 IN 3 WK
     Dates: start: 20091230, end: 2010
  11. ETOPOSIDE. [Suspect]
     Active Substance: ETOPOSIDE
     Indication: THYMIC CANCER METASTATIC
     Dosage: FIRST CYCLE; 3 DAY REGIMEN
     Dates: start: 20110124
  12. LOMOTIL [Concomitant]
     Active Substance: ATROPINE SULFATE\DIPHENOXYLATE HYDROCHLORIDE
     Indication: PRODUCT USED FOR UNKNOWN INDICATION
     Dosage: 1  Q8H
     Route: 048
     Dates: start: 20140910
  13. PREDNISONE. [Concomitant]
     Active Substance: PREDNISONE
     Indication: PRODUCT USED FOR UNKNOWN INDICATION
     Dosage: 4 MG, QD
     Route: 048
     Dates: start: 20140902
  14. CISPLATIN. [Suspect]
     Active Substance: CISPLATIN
     Indication: THYMIC CANCER METASTATIC
     Dosage: FIRST CYCLE
     Dates: start: 20110124
  15. VOTRIENT [Concomitant]
     Active Substance: PAZOPANIB HYDROCHLORIDE
     Indication: PRODUCT USED FOR UNKNOWN INDICATION
     Dosage: 200 MG, TID
     Route: 048
     Dates: start: 20140922
  16. APREPITANT. [Concomitant]
     Active Substance: APREPITANT
     Indication: PRODUCT USED FOR UNKNOWN INDICATION
     Dosage: DOSE PACK 125-80-80, PRN
     Route: 048
     Dates: start: 20110412
  17. GEMZAR [Suspect]
     Active Substance: GEMCITABINE HYDROCHLORIDE
     Indication: THYMIC CANCER METASTATIC
     Dosage: UNK
     Dates: start: 2008
  18. PEMETREXED [Suspect]
     Active Substance: PEMETREXED
     Indication: THYMIC CANCER METASTATIC
     Dosage: UNK
     Dates: start: 20101022, end: 20110112
  19. IRINOTECAN [Suspect]
     Active Substance: IRINOTECAN
     Indication: THYMIC CANCER METASTATIC
     Dosage: UNK
     Dates: start: 20140401
  20. PREDNISONE. [Concomitant]
     Active Substance: PREDNISONE
     Dosage: 5 MG, BID
     Route: 048
     Dates: start: 20130707
  21. PREDNISONE. [Concomitant]
     Active Substance: PREDNISONE
     Dosage: 5 MG, BID
     Route: 048
     Dates: start: 20130114
  22. METHOTREXATE SODIUM. [Suspect]
     Active Substance: METHOTREXATE SODIUM
     Indication: THYMIC CANCER METASTATIC
     Dosage: 1 IN 3 WK
     Dates: start: 20091230, end: 2010
  23. CYTOXAN [Suspect]
     Active Substance: CYCLOPHOSPHAMIDE
     Dosage: 1 IN 3 WK
     Dates: start: 20091230, end: 2010
  24. CARBOPLATINUM [Suspect]
     Active Substance: CARBOPLATIN
     Indication: THYMIC CANCER METASTATIC
     Dosage: UNK
     Dates: start: 2009
  25. DILAUDID [Concomitant]
     Active Substance: HYDROMORPHONE HYDROCHLORIDE
     Dosage: 1 UNK, QD
     Route: 048
     Dates: start: 20121107
  26. TYLENOL [Concomitant]
     Active Substance: ACETAMINOPHEN
     Indication: PRODUCT USED FOR UNKNOWN INDICATION
     Dosage: UNK
     Route: 048
  27. DILAUDID [Concomitant]
     Active Substance: HYDROMORPHONE HYDROCHLORIDE
     Dosage: 1 UNK, QD
     Route: 048
     Dates: start: 20130327
  28. DILAUDID [Concomitant]
     Active Substance: HYDROMORPHONE HYDROCHLORIDE
     Dosage: UNK
     Route: 042
  29. SUTENT [Concomitant]
     Active Substance: SUNITINIB MALATE
     Indication: PRODUCT USED FOR UNKNOWN INDICATION
     Dosage: 50 MG, QD, 3 WEEKS ON AND 1 WEEK OFF
     Route: 054
     Dates: start: 20111113
  30. CISPLATINUM [Suspect]
     Active Substance: CISPLATIN
     Indication: THYMIC CANCER METASTATIC
     Dosage: 5 CYCLES
     Dates: start: 200711, end: 20140903
  31. TAXOL [Suspect]
     Active Substance: PACLITAXEL
     Indication: THYMIC CANCER METASTATIC
     Dosage: UNK
     Dates: start: 2009
  32. TAXOL [Suspect]
     Active Substance: PACLITAXEL
     Dosage: BEGINNING 6TH CYCLE
     Dates: start: 200908, end: 200912
  33. CARBOPLATINUM [Suspect]
     Active Substance: CARBOPLATIN
     Dosage: BEGINNING 6TH CYCLE (1 IN 1 WK)
     Dates: start: 200908, end: 200912
  34. LASIX [Concomitant]
     Active Substance: FUROSEMIDE
     Indication: PRODUCT USED FOR UNKNOWN INDICATION
     Dosage: UNK
     Route: 048
  35. OMEPRAZOLE. [Concomitant]
     Active Substance: OMEPRAZOLE
     Indication: PRODUCT USED FOR UNKNOWN INDICATION
     Dosage: UNK
     Dates: start: 201503
  36. ADRIAMYCIN [Suspect]
     Active Substance: DOXORUBICIN HYDROCHLORIDE
     Indication: THYMIC CANCER METASTATIC
     Dosage: UNK
     Dates: start: 200711
  37. ETOPOSIDE. [Suspect]
     Active Substance: ETOPOSIDE
     Dosage: SECOND CYCLE
     Dates: start: 20110302
  38. DILAUDID [Concomitant]
     Active Substance: HYDROMORPHONE HYDROCHLORIDE
     Indication: PAIN
     Dosage: 1 UNK, QD
     Route: 048
     Dates: start: 20140527

REACTIONS (17)
  - Neuropathy peripheral [Not Recovered/Not Resolved]
  - Trismus [Not Recovered/Not Resolved]
  - Diarrhoea [Not Recovered/Not Resolved]
  - Disease progression [Not Recovered/Not Resolved]
  - Restrictive pulmonary disease [Not Recovered/Not Resolved]
  - Lung infiltration [Not Recovered/Not Resolved]
  - Chest pain [Not Recovered/Not Resolved]
  - Candida infection [Not Recovered/Not Resolved]
  - Hand-foot-and-mouth disease [Not Recovered/Not Resolved]
  - Lip ulceration [Not Recovered/Not Resolved]
  - Pain [Not Recovered/Not Resolved]
  - Aplasia pure red cell [Not Recovered/Not Resolved]
  - Hypothyroidism [Not Recovered/Not Resolved]
  - Blood urine present [Not Recovered/Not Resolved]
  - Thymic cancer metastatic [Not Recovered/Not Resolved]
  - Skin discolouration [Not Recovered/Not Resolved]
  - Dyspnoea [Not Recovered/Not Resolved]

NARRATIVE: CASE EVENT DATE: 2009
